FAERS Safety Report 12142450 (Version 1)
Quarter: 2016Q1

REPORT INFORMATION
  Report Type: Spontaneous
  Country: US (occurrence: US)
  Receive Date: 20160303
  Receipt Date: 20160303
  Transmission Date: 20160526
  Serious: Yes (Hospitalization)
  Sender: FDA-Public Use
  Company Number: US-TEVA-639377USA

PATIENT
  Age: 49 Year
  Sex: Female

DRUGS (15)
  1. CRANBERRY VITAMIN [Concomitant]
  2. GABAPENTIN. [Suspect]
     Active Substance: GABAPENTIN
     Dosage: 1200 MILLIGRAM DAILY;
     Dates: start: 201510
  3. ELAVIL [Suspect]
     Active Substance: AMITRIPTYLINE HYDROCHLORIDE
     Indication: HEADACHE
     Dosage: 50MG TO 75MG PER NIGHT
     Dates: start: 201405
  4. CRESTOR [Concomitant]
     Active Substance: ROSUVASTATIN CALCIUM
     Dosage: 20 MILLIGRAM DAILY; AT NIGHT
  5. KRILL OIL [Concomitant]
     Active Substance: DIETARY SUPPLEMENT
  6. HYDROCODONE [Suspect]
     Active Substance: HYDROCODONE
     Indication: PAIN
     Dosage: 10MG-325MG
     Dates: start: 201511
  7. DIAZEPAM. [Suspect]
     Active Substance: DIAZEPAM
     Indication: PANIC ATTACK
     Dosage: 1.5 MILLIGRAM DAILY;
     Dates: start: 20010531
  8. COQ10 [Concomitant]
     Active Substance: UBIDECARENONE
  9. GERITOL [Concomitant]
     Active Substance: MINERALS\VITAMINS
  10. ELAVIL [Suspect]
     Active Substance: AMITRIPTYLINE HYDROCHLORIDE
     Indication: SLEEP DISORDER THERAPY
  11. 5-HTP [Concomitant]
     Active Substance: OXITRIPTAN
  12. PRILOSEC [Concomitant]
     Active Substance: OMEPRAZOLE MAGNESIUM
  13. PRENATAL VITAMINS [Concomitant]
     Active Substance: VITAMINS
  14. TRAMADOL. [Suspect]
     Active Substance: TRAMADOL
     Indication: PANIC ATTACK
     Dosage: 300 MILLIGRAM DAILY;
     Dates: start: 20130626
  15. PRISTIQ EXTENDED RELEASE [Suspect]
     Active Substance: DESVENLAFAXINE SUCCINATE
     Indication: DEPRESSION
     Dosage: 50 MILLIGRAM DAILY;
     Dates: start: 2006

REACTIONS (4)
  - Back pain [Not Recovered/Not Resolved]
  - Exostosis [Not Recovered/Not Resolved]
  - Lumbar spinal stenosis [Not Recovered/Not Resolved]
  - Vertebral foraminal stenosis [Unknown]

NARRATIVE: CASE EVENT DATE: 201306
